FAERS Safety Report 16245821 (Version 3)
Quarter: 2019Q3

REPORT INFORMATION
  Report Type: Report from Study
  Country: None (occurrence: DK)
  Receive Date: 20190426
  Receipt Date: 20190903
  Transmission Date: 20191004
  Serious: Yes (Hospitalization)
  Sender: FDA-Public Use
  Company Number: DK-ABBVIE-19P-044-2734001-00

PATIENT
  Age: 74 Year
  Sex: Male

DRUGS (3)
  1. RO6870810 [Suspect]
     Active Substance: RO-6870810
     Indication: DIFFUSE LARGE B-CELL LYMPHOMA
     Dosage: ON DAYS 1-14 OF EACH 21 DAY CYCLE. DATE OF MOST RECENT DOSE PRIOR TO THE SAE: 19/MAR/2019
     Route: 058
     Dates: start: 20190305
  2. RITUXIMAB. [Suspect]
     Active Substance: RITUXIMAB
     Indication: DIFFUSE LARGE B-CELL LYMPHOMA
     Dosage: MOST RECENT DOSE  PRIOR SAE ONSET: 19/MAR/2019
     Route: 042
     Dates: start: 20190312
  3. VENETOCLAX. [Suspect]
     Active Substance: VENETOCLAX
     Indication: DIFFUSE LARGE B-CELL LYMPHOMA
     Dosage: MOST RECENT DOSE PRIOR TO SAE ONSET: 25/MAR/2019
     Route: 048
     Dates: start: 20190305

REACTIONS (1)
  - Diverticulitis [Not Recovered/Not Resolved]

NARRATIVE: CASE EVENT DATE: 20190326
